FAERS Safety Report 16805375 (Version 1)
Quarter: 2019Q3

REPORT INFORMATION
  Report Type: Spontaneous
  Country: CN (occurrence: CN)
  Receive Date: 20190913
  Receipt Date: 20190913
  Transmission Date: 20191005
  Serious: Yes (Other)
  Sender: FDA-Public Use
  Company Number: CN-SA-2019SA255967

PATIENT
  Age: 74 Year
  Sex: Male

DRUGS (2)
  1. NIMODIPINE. [Concomitant]
     Active Substance: NIMODIPINE
     Dosage: UNK UNK, UNK
     Route: 065
     Dates: start: 20190220, end: 20190906
  2. HARNAL [Suspect]
     Active Substance: TAMSULOSIN HYDROCHLORIDE
     Indication: BENIGN PROSTATIC HYPERPLASIA
     Dosage: 0.2 MG, QD
     Route: 048
     Dates: start: 20190819, end: 20190826

REACTIONS (3)
  - Blood pressure decreased [Recovering/Resolving]
  - Initial insomnia [Recovering/Resolving]
  - Dizziness [Recovering/Resolving]

NARRATIVE: CASE EVENT DATE: 20190826
